FAERS Safety Report 9433687 (Version 2)
Quarter: 2013Q3

REPORT INFORMATION
  Report Type: Spontaneous
  Country: US (occurrence: US)
  Receive Date: 20130731
  Receipt Date: 20130916
  Transmission Date: 20140515
  Serious: Yes (Hospitalization, Other)
  Sender: FDA-Public Use
  Company Number: US-ELI_LILLY_AND_COMPANY-US201307007270

PATIENT
  Age: 63 Year
  Sex: Female

DRUGS (7)
  1. HUMALOG 25% LISPRO, 75% NPL [Suspect]
     Indication: TYPE 2 DIABETES MELLITUS
     Dosage: 50 U, BID
     Route: 058
  2. METFORMIN [Concomitant]
  3. LISINOPRIL [Concomitant]
  4. LORAZEPAM [Concomitant]
     Dosage: 0.5 MG, UNK
  5. ASPIRIN CHILDREN [Concomitant]
  6. CHLOR-TRIMETON [Concomitant]
     Indication: HYPERSENSITIVITY
     Dosage: 4 MG, UNK
  7. DIPHENHYDRAMINE [Concomitant]

REACTIONS (3)
  - Cerebrovascular accident [Recovered/Resolved]
  - Ischaemic stroke [Recovered/Resolved with Sequelae]
  - Blood pressure decreased [Recovered/Resolved]
